FAERS Safety Report 9740180 (Version 2)
Quarter: 2013Q4

REPORT INFORMATION
  Report Type: Spontaneous
  Country: US (occurrence: US)
  Receive Date: 20131209
  Receipt Date: 20131209
  Transmission Date: 20140711
  Serious: Yes (Death, Life-Threatening, Hospitalization)
  Sender: FDA-Public Use
  Company Number: US-ONYX-2013-1458

PATIENT
  Age: 54 Year
  Sex: Male
  Weight: 81.72 kg

DRUGS (15)
  1. KYPROLIS [Suspect]
     Indication: AMYLOIDOSIS
     Route: 042
     Dates: start: 20130711
  2. KYPROLIS [Suspect]
     Route: 042
     Dates: start: 20130822, end: 20130823
  3. DEXAMETHASONE [Concomitant]
     Indication: AMYLOIDOSIS
     Route: 042
     Dates: start: 20130715
  4. POMALYST [Concomitant]
     Indication: AMYLOIDOSIS
     Dates: start: 201307
  5. ANDROGEL [Concomitant]
     Indication: PRODUCT USED FOR UNKNOWN INDICATION
  6. TEMAZEPAM [Concomitant]
     Indication: PRODUCT USED FOR UNKNOWN INDICATION
  7. ISENTRESS [Concomitant]
     Indication: PRODUCT USED FOR UNKNOWN INDICATION
  8. MICARDIS [Concomitant]
     Indication: PRODUCT USED FOR UNKNOWN INDICATION
  9. TRUVADA [Concomitant]
     Indication: PRODUCT USED FOR UNKNOWN INDICATION
  10. PRILOSEC [Concomitant]
     Indication: PRODUCT USED FOR UNKNOWN INDICATION
  11. ASPIRIN [Concomitant]
     Indication: PRODUCT USED FOR UNKNOWN INDICATION
  12. VERAMYST [Concomitant]
  13. LORATADINE [Concomitant]
     Indication: PRODUCT USED FOR UNKNOWN INDICATION
  14. RIVAROXABAN [Concomitant]
     Indication: PRODUCT USED FOR UNKNOWN INDICATION
  15. ANTIVIRAL [Concomitant]
     Indication: HIV INFECTION

REACTIONS (6)
  - Cardiogenic shock [Fatal]
  - Atrioventricular block [Not Recovered/Not Resolved]
  - Myocardial ischaemia [Not Recovered/Not Resolved]
  - Multi-organ failure [Not Recovered/Not Resolved]
  - Renal failure [Not Recovered/Not Resolved]
  - Thrombosis [Unknown]
